FAERS Safety Report 11344108 (Version 1)
Quarter: 2015Q3

REPORT INFORMATION
  Report Type: Spontaneous
  Country: US (occurrence: US)
  Receive Date: 20150806
  Receipt Date: 20150806
  Transmission Date: 20151125
  Serious: Yes (Other)
  Sender: FDA-Public Use
  Company Number: US-ACTAVIS-2015-16382

PATIENT
  Age: 82 Year
  Sex: Female

DRUGS (6)
  1. EVISTA [Concomitant]
     Active Substance: RALOXIFENE HYDROCHLORIDE
     Indication: OSTEOPOROSIS
     Dosage: UNK
     Route: 065
  2. FOLIC ACID. [Concomitant]
     Active Substance: FOLIC ACID
     Indication: OSTEOPOROSIS
     Dosage: UNK
     Route: 065
  3. TAMOXIFEN CITRATE (ACTAVIS LABORATORIES FL) [Suspect]
     Active Substance: TAMOXIFEN CITRATE
     Indication: BREAST CANCER
     Dosage: UNK, FOR ALMOST 2 YEARS
     Route: 065
  4. CYCLOSPORINE. [Concomitant]
     Active Substance: CYCLOSPORINE
     Indication: OCULAR SURFACE DISEASE
     Dosage: UNK, BID
     Route: 047
  5. CITALOPRAM [Concomitant]
     Active Substance: CITALOPRAM HYDROBROMIDE
     Indication: DEPRESSION
     Dosage: UNK
     Route: 065
  6. ARICEPT [Concomitant]
     Active Substance: DONEPEZIL HYDROCHLORIDE
     Indication: AMNESIA
     Dosage: UNK
     Route: 065

REACTIONS (1)
  - Retinopathy [Not Recovered/Not Resolved]
